FAERS Safety Report 5957519-1 (Version None)
Quarter: 2008Q4

REPORT INFORMATION
  Report Type: 
  Country: None (occurrence: None)
  Receive Date: 20081110
  Receipt Date: 20081022
  Transmission Date: 20090506
  Serious: Yes (Hospitalization)
  Sender: FDA-Public Use
  Company Number: B0544342A

PATIENT
  Age: 55 Year
  Sex: Male

DRUGS (3)
  1. ROPINIROLE HYDROCHLORIDE [Suspect]
     Indication: PARKINSON'S DISEASE
     Dosage: 3 MG / PER DAY
  2. CABERGOLINE (FORMULATION UNKNOWN) (CABERGOLINE) [Suspect]
     Indication: PARKINSON'S DISEASE
     Dosage: 4 MG / PER DAY
  3. LEVODOPA (FORMULATION UNKNOWN) (LEVODOPA) [Suspect]
     Indication: PARKINSON'S DISEASE

REACTIONS (8)
  - AGGRESSION [None]
  - DOPAMINE DYSREGULATION SYNDROME [None]
  - HYPOMANIA [None]
  - IMPULSIVE BEHAVIOUR [None]
  - IRRITABILITY [None]
  - PATHOLOGICAL GAMBLING [None]
  - PERSONALITY DISORDER [None]
  - PSYCHOSEXUAL DISORDER [None]
